FAERS Safety Report 14568948 (Version 1)
Quarter: 2018Q1

REPORT INFORMATION
  Report Type: Spontaneous
  Country: GB (occurrence: GB)
  Receive Date: 20180223
  Receipt Date: 20180223
  Transmission Date: 20180509
  Serious: Yes (Death, Other)
  Sender: FDA-Public Use
  Company Number: PHHY2018GB031214

PATIENT
  Age: 13 Year
  Sex: Female

DRUGS (8)
  1. METHYLPREDNISOLONE. [Suspect]
     Active Substance: METHYLPREDNISOLONE
     Indication: STILL^S DISEASE
     Dosage: UNK UNK, QW
     Route: 042
  2. METHOTREXATE. [Suspect]
     Active Substance: METHOTREXATE
     Indication: STILL^S DISEASE
     Dosage: 15 MG/M2, QW
     Route: 058
  3. TEICOPLANIN [Concomitant]
     Active Substance: TEICOPLANIN
     Indication: PRODUCT USED FOR UNKNOWN INDICATION
     Dosage: UNK
     Route: 065
  4. ETANERCEPT [Suspect]
     Active Substance: ETANERCEPT
     Indication: STILL^S DISEASE
     Dosage: 0.4 MG/KG, QW
     Route: 065
     Dates: start: 200003, end: 200005
  5. VANCOMYCIN [Concomitant]
     Active Substance: VANCOMYCIN
     Indication: PRODUCT USED FOR UNKNOWN INDICATION
     Dosage: UNK
     Route: 065
  6. PREDNISOLONE. [Suspect]
     Active Substance: PREDNISOLONE
     Indication: STILL^S DISEASE
     Dosage: 0.5-1 MG/KG, QD
     Route: 048
  7. INFLIXIMAB [Suspect]
     Active Substance: INFLIXIMAB
     Indication: STILL^S DISEASE
     Dosage: 5 MG/KG, ONCE/SINGLE
     Route: 065
     Dates: start: 200402
  8. ETANERCEPT [Suspect]
     Active Substance: ETANERCEPT
     Dosage: 0.4 MG/KG, QW
     Route: 065
     Dates: start: 200305, end: 200401

REACTIONS (18)
  - Still^s disease [Unknown]
  - Pallor [Fatal]
  - Abdominal discomfort [Fatal]
  - Joint tuberculosis [Unknown]
  - Alpha haemolytic streptococcal infection [Fatal]
  - Nausea [Fatal]
  - Dizziness [Fatal]
  - Rash maculo-papular [Fatal]
  - Rash macular [Fatal]
  - Osteoporosis [Unknown]
  - Growth retardation [Unknown]
  - Cushingoid [Unknown]
  - Cardio-respiratory arrest [Fatal]
  - Pyrexia [Fatal]
  - Hypotension [Fatal]
  - Cataract [Unknown]
  - Vomiting [Fatal]
  - Diarrhoea [Fatal]

NARRATIVE: CASE EVENT DATE: 20040228
